FAERS Safety Report 17195701 (Version 1)
Quarter: 2019Q4

REPORT INFORMATION
  Report Type: Spontaneous
  Country: US (occurrence: US)
  Receive Date: 20191202
  Receipt Date: 20191202
  Transmission Date: 20200122
  Serious: No
  Sender: FDA-Public Use
  Company Number: None

PATIENT
  Age: 89 Year
  Sex: Male

DRUGS (7)
  1. BENAZEPRIL [Suspect]
     Active Substance: BENAZEPRIL HYDROCHLORIDE
  2. GLIPIZIDE. [Suspect]
     Active Substance: GLIPIZIDE
  3. ERLEADA [Suspect]
     Active Substance: APALUTAMIDE
     Indication: PROSTATE CANCER
     Route: 048
     Dates: start: 20191129
  4. ASPIRIN. [Suspect]
     Active Substance: ASPIRIN
  5. METFORMIN [Suspect]
     Active Substance: METFORMIN HYDROCHLORIDE
  6. HYDROCHLORTHIAZIDE [Suspect]
     Active Substance: HYDROCHLOROTHIAZIDE
  7. LEVOTHYROXINE. [Suspect]
     Active Substance: LEVOTHYROXINE

REACTIONS (2)
  - Somnolence [None]
  - Fatigue [None]

NARRATIVE: CASE EVENT DATE: 20191130
